FAERS Safety Report 6618923-1 (Version None)
Quarter: 2010Q1

REPORT INFORMATION
  Report Type: 
  Country: None (occurrence: None)
  Receive Date: 20100308
  Receipt Date: 20100224
  Transmission Date: 20100710
  Serious: Yes (Other)
  Sender: FDA-Public Use
  Company Number: CZ-SANOFI-AVENTIS-2010SA011327

PATIENT
  Age: 34 Year
  Sex: Female

DRUGS (4)
  1. LANTUS [Suspect]
     Route: 058
     Dates: start: 20070101
  2. HUMALOG [Concomitant]
     Route: 058
     Dates: start: 20070101
  3. METHYLDOPA [Concomitant]
     Indication: HYPERTENSION
     Route: 048
  4. VASOCARDIN [Concomitant]
     Indication: HYPERTENSION
     Route: 048

REACTIONS (2)
  - DRUG EXPOSURE DURING PREGNANCY [None]
  - PRE-ECLAMPSIA [None]
